FAERS Safety Report 5064776-5 (Version None)
Quarter: 2006Q3

REPORT INFORMATION
  Report Type: 
  Country: None (occurrence: None)
  Receive Date: 20060728
  Receipt Date: 20060720
  Transmission Date: 20061208
  Serious: Yes (Other)
  Sender: FDA-Public Use
  Company Number: PHBS2006BR11057

PATIENT
  Age: 65 Year
  Sex: Female

DRUGS (2)
  1. LIORESAL [Suspect]
     Indication: MUSCLE SPASTICITY
     Route: 048
  2. SIRDALUD [Suspect]
     Indication: MUSCLE SPASTICITY
     Route: 048

REACTIONS (1)
  - CEREBROVASCULAR ACCIDENT [None]
